FAERS Safety Report 10145005 (Version 1)
Quarter: 2014Q2

REPORT INFORMATION
  Report Type: Spontaneous
  Country: HR (occurrence: HR)
  Receive Date: 20140501
  Receipt Date: 20140501
  Transmission Date: 20141212
  Serious: Yes (Other)
  Sender: FDA-Public Use
  Company Number: PHHY2014HR049901

PATIENT
  Sex: 0

DRUGS (2)
  1. FUROSEMIDE [Suspect]
  2. BETA 2 AGONISTS [Interacting]

REACTIONS (3)
  - Asthma [Unknown]
  - Hypokalaemia [Unknown]
  - Drug interaction [Unknown]
